FAERS Safety Report 8915006 (Version 2)
Quarter: 2013Q1

REPORT INFORMATION
  Report Type: Spontaneous
  Country: IT (occurrence: IT)
  Receive Date: 20121119
  Receipt Date: 20130312
  Transmission Date: 20140127
  Serious: Yes (Other)
  Sender: FDA-Public Use
  Company Number: IT-ROCHE-1156102

PATIENT
  Age: 75 Year
  Sex: Female

DRUGS (4)
  1. HERCEPTIN [Suspect]
     Indication: BREAST CANCER
     Route: 042
     Dates: start: 20121002, end: 20121002
  2. TAXOTERE [Suspect]
     Indication: BREAST CANCER
     Route: 042
     Dates: start: 20121002, end: 20121002
  3. SOLDESAM [Suspect]
     Indication: BREAST CANCER
     Route: 042
     Dates: start: 20121002, end: 20121002
  4. ONDANSETRON BASICS [Concomitant]
     Indication: BREAST CANCER
     Route: 042
     Dates: start: 20121002, end: 20121002

REACTIONS (2)
  - Ocular hyperaemia [Recovered/Resolved]
  - Oedema [Recovered/Resolved]
